FAERS Safety Report 25429088 (Version 1)
Quarter: 2025Q2

REPORT INFORMATION
  Report Type: Other
  Country: FR (occurrence: FR)
  Receive Date: 20250612
  Receipt Date: 20250612
  Transmission Date: 20250716
  Serious: Yes (Other)
  Sender: Atnahs Healthcare
  Company Number: None

PATIENT
  Age: 29 Year
  Sex: Male

DRUGS (4)
  1. DIAZEPAM [Suspect]
     Active Substance: DIAZEPAM
     Indication: Product used for unknown indication
     Route: 045
     Dates: start: 2014
  2. DIAZEPAM [Suspect]
     Active Substance: DIAZEPAM
     Route: 048
     Dates: start: 2014
  3. BUSPIRONE [Suspect]
     Active Substance: BUSPIRONE HYDROCHLORIDE
     Indication: Product used for unknown indication
     Route: 045
     Dates: start: 2024
  4. BUSPIRONE [Suspect]
     Active Substance: BUSPIRONE HYDROCHLORIDE
     Route: 048
     Dates: start: 2024

REACTIONS (1)
  - Drug use disorder [Not Recovered/Not Resolved]

NARRATIVE: CASE EVENT DATE: 20250501
